FAERS Safety Report 14535359 (Version 1)
Quarter: 2018Q1

REPORT INFORMATION
  Report Type: Spontaneous
  Country: US (occurrence: US)
  Receive Date: 20180215
  Receipt Date: 20180215
  Transmission Date: 20180509
  Serious: Yes (Hospitalization)
  Sender: FDA-Public Use
  Company Number: US-VIFOR (INTERNATIONAL) INC.-VIT-2018-01519

PATIENT
  Sex: Female

DRUGS (10)
  1. HYDRALAZINE HYDROCHLORIDE. [Concomitant]
     Active Substance: HYDRALAZINE HYDROCHLORIDE
  2. ALLOPURINOL. [Concomitant]
     Active Substance: ALLOPURINOL
  3. CHLORTALIDONE [Concomitant]
     Active Substance: CHLORTHALIDONE
  4. ULOBETASOL PROPIONATE [Concomitant]
  5. CARVEDILOL. [Concomitant]
     Active Substance: CARVEDILOL
  6. VELTASSA [Suspect]
     Active Substance: PATIROMER
     Indication: HYPERKALAEMIA
     Route: 048
     Dates: start: 20170124
  7. AMLODIPINE BESILATE [Concomitant]
     Active Substance: AMLODIPINE BESYLATE
  8. FUROSEMIDE. [Concomitant]
     Active Substance: FUROSEMIDE
  9. GABAPENTIN. [Concomitant]
     Active Substance: GABAPENTIN
  10. INTEGRA PLUS [Concomitant]
     Active Substance: ASCORBIC ACID\BIOTIN\CALCIUM PANTOTHENATE\FERROUS ASPARTO GLYCINATE\FERROUS FUMARATE\FOLIC ACID\NIACIN\PYRIDOXINE HYDROCHLORIDE\RIBOFLAVIN\THIAMINE MONONITRATE

REACTIONS (2)
  - Hypertension [Unknown]
  - Blood potassium decreased [Unknown]

NARRATIVE: CASE EVENT DATE: 2018
